FAERS Safety Report 9518539 (Version 2)
Quarter: 2013Q3

REPORT INFORMATION
  Report Type: Report from Study
  Country: KR (occurrence: KR)
  Receive Date: 20130912
  Receipt Date: 20130912
  Transmission Date: 20140515
  Serious: Yes (Hospitalization, Disabling, Other)
  Sender: FDA-Public Use
  Company Number: PHHO2013KR008190

PATIENT
  Age: 69 Year
  Sex: Female
  Weight: 65.6 kg

DRUGS (13)
  1. BLINDED ALISKIREN [Suspect]
     Indication: CARDIAC FAILURE
     Dosage: DOUBLE BLINDED
     Route: 048
     Dates: start: 20101029, end: 20130723
  2. BLINDED ENALAPRIL [Suspect]
     Indication: CARDIAC FAILURE
     Dosage: DOUBLE BLINDED
     Route: 048
     Dates: start: 20101029, end: 20130723
  3. BLINDED NO TREATMENT RECEIVED [Suspect]
     Indication: CARDIAC FAILURE
     Dosage: DOUBLE BLINDED
     Route: 048
     Dates: start: 20101029, end: 20130723
  4. LASIX [Concomitant]
     Indication: CARDIAC FAILURE
     Dosage: 20 MG, QD
     Route: 048
     Dates: start: 20071205
  5. ASPIRIN PROTECT [Concomitant]
     Indication: CEREBRAL INFARCTION
     Dosage: 100 MG, QD
     Route: 048
     Dates: start: 20130618
  6. ALFOATIRIN [Concomitant]
     Indication: CEREBRAL INFARCTION
     Dosage: 1200 MG, TID
     Route: 048
     Dates: start: 20130622
  7. MYPOL [Concomitant]
     Indication: DIZZINESS
     Dosage: 2 DF, BID
     Dates: start: 20130622
  8. COUMADINE [Concomitant]
     Indication: CARDIAC FAILURE
     Dosage: 2.5 MG, QD
     Route: 048
     Dates: start: 20080102
  9. COUMADINE [Concomitant]
     Dosage: 5 MG, QD
     Route: 048
     Dates: start: 20080227
  10. COUMADINE [Concomitant]
     Dosage: 7.5 MG, QD
     Route: 048
     Dates: start: 20110124, end: 20130722
  11. COUMADINE [Concomitant]
     Dosage: 12.5 MG (5/7.5 MG), QD
     Route: 048
     Dates: start: 20130430, end: 20130722
  12. COUMADINE [Concomitant]
     Dosage: 5 MG, QD
     Route: 048
     Dates: start: 20130724
  13. DILATREND [Concomitant]
     Indication: CARDIAC FAILURE
     Dosage: 15 MG, BID
     Route: 048
     Dates: start: 20071205

REACTIONS (7)
  - Dural arteriovenous fistula [Recovered/Resolved]
  - Brain stem infarction [Recovering/Resolving]
  - Cerebrovascular accident [Recovering/Resolving]
  - Congestive cardiomyopathy [Recovering/Resolving]
  - Mitral valve incompetence [Recovering/Resolving]
  - Dizziness [Recovered/Resolved]
  - Hepatitis B [Not Recovered/Not Resolved]
